FAERS Safety Report 5923239-2 (Version None)
Quarter: 2008Q4

REPORT INFORMATION
  Report Type: 
  Country: None (occurrence: None)
  Receive Date: 20081020
  Receipt Date: 20081013
  Transmission Date: 20090506
  Serious: Yes (Hospitalization)
  Sender: FDA-Public Use
  Company Number: CZ-BAYER-CZ-2007-027046

PATIENT

DRUGS (1)
  1. BETASERON [Suspect]
     Indication: MULTIPLE SCLEROSIS
     Dosage: UNIT DOSE: 250 ?G
     Route: 058
     Dates: start: 20070620

REACTIONS (2)
  - DRUG HYPERSENSITIVITY [None]
  - PHARYNGITIS [None]
